FAERS Safety Report 25602953 (Version 2)
Quarter: 2025Q3

REPORT INFORMATION
  Report Type: Spontaneous
  Country: EU (occurrence: EU)
  Receive Date: 20250724
  Receipt Date: 20250801
  Transmission Date: 20251020
  Serious: Yes (Hospitalization)
  Sender: ABBVIE
  Company Number: EU-DEM-011690

PATIENT
  Age: 87 Year
  Sex: Male

DRUGS (3)
  1. MESALAMINE [Suspect]
     Active Substance: MESALAMINE
     Indication: Colitis ulcerative
     Route: 048
  2. SOLIFENACIN [Suspect]
     Active Substance: SOLIFENACIN
     Indication: Product used for unknown indication
     Route: 065
  3. TRIPTORELIN [Suspect]
     Active Substance: TRIPTORELIN
     Indication: Product used for unknown indication
     Route: 065

REACTIONS (7)
  - Decreased appetite [Recovering/Resolving]
  - Gastrointestinal hypomotility [Recovering/Resolving]
  - Inflammatory marker increased [Unknown]
  - Faecaloma [Recovering/Resolving]
  - Abdominal pain [Recovering/Resolving]
  - Hypoalbuminaemia [Unknown]
  - Thrombocytosis [Unknown]
